FAERS Safety Report 5215875-6 (Version None)
Quarter: 2007Q1

REPORT INFORMATION
  Report Type: 
  Country: None (occurrence: None)
  Receive Date: 20070123
  Receipt Date: 20070116
  Transmission Date: 20070707
  Serious: Yes (Death)
  Sender: FDA-Public Use
  Company Number: CN-ROCHE-467343

PATIENT
  Age: 55 Year
  Sex: Female
  Weight: 45 kg

DRUGS (19)
  1. MYCOPHENOLATE MOFETIL [Suspect]
     Indication: LUPUS NEPHRITIS
     Route: 048
     Dates: start: 20060726, end: 20060801
  2. MYCOPHENOLATE MOFETIL [Suspect]
     Dosage: PROTOCOL TITRATION
     Route: 048
     Dates: start: 20060802, end: 20061016
  3. MYCOPHENOLATE MOFETIL [Suspect]
     Dosage: ADVERSE EVENT
     Route: 048
     Dates: start: 20061017, end: 20061020
  4. MYCOPHENOLATE MOFETIL [Suspect]
     Dosage: ADVERSE EVENT
     Route: 048
     Dates: start: 20061021, end: 20061021
  5. PREDNISONE TAB [Suspect]
     Indication: LUPUS NEPHRITIS
     Route: 065
     Dates: start: 19970615
  6. PREDNISONE TAB [Suspect]
     Route: 065
     Dates: start: 20060711, end: 20060808
  7. PREDNISONE TAB [Suspect]
     Route: 065
     Dates: start: 20060809, end: 20060822
  8. PREDNISONE TAB [Suspect]
     Route: 065
     Dates: start: 20060823, end: 20060905
  9. PREDNISONE TAB [Suspect]
     Route: 065
     Dates: start: 20060906, end: 20060919
  10. PREDNISONE TAB [Suspect]
     Route: 065
     Dates: start: 20060920, end: 20060927
  11. PREDNISONE TAB [Suspect]
     Route: 065
     Dates: start: 20060928, end: 20061022
  12. OMEPRAZOLE [Concomitant]
     Dates: start: 20060626, end: 20061022
  13. CALCITRIOL [Concomitant]
     Dates: start: 20060626, end: 20061022
  14. CALCICHEW [Concomitant]
     Dates: start: 20060711, end: 20061022
  15. ASPIRIN [Concomitant]
     Dates: start: 20060711, end: 20061015
  16. IRBESARTAN [Concomitant]
     Dates: start: 20060720, end: 20061022
  17. LESCOL [Concomitant]
     Dates: start: 20060725, end: 20061022
  18. METHYLPREDNISOLONE 16MG TAB [Suspect]
     Indication: LUPUS NEPHRITIS
     Route: 065
     Dates: start: 20061023, end: 20061023
  19. METHYLPREDNISOLONE 16MG TAB [Suspect]
     Route: 065
     Dates: start: 20061024, end: 20061114

REACTIONS (1)
  - INTERSTITIAL LUNG DISEASE [None]
